FAERS Safety Report 8830186 (Version 1)
Quarter: 2012Q4

REPORT INFORMATION
  Report Type: Spontaneous
  Country: US (occurrence: None)
  Receive Date: 20121005
  Receipt Date: 20121005
  Transmission Date: 20130627
  Serious: Yes (Death)
  Sender: FDA-Public Use
  Company Number: None

PATIENT
  Age: 70 Year
  Sex: Male
  Weight: 105 kg

DRUGS (1)
  1. RIFAMPICIN [Suspect]
     Indication: MULTIPLE SYSTEM ATROPHY
     Dosage: 300 mg BID
     Dates: start: 20110912, end: 20120908

REACTIONS (3)
  - Neck pain [None]
  - Aortic dissection [None]
  - Unresponsive to stimuli [None]
